FAERS Safety Report 9155091 (Version 1)
Quarter: 2013Q1

REPORT INFORMATION
  Report Type: Spontaneous
  Country: US (occurrence: None)
  Receive Date: 20130205
  Receipt Date: 20130205
  Transmission Date: 20140127
  Serious: Yes (Hospitalization, Other)
  Sender: FDA-Public Use
  Company Number: 2013P1001558

PATIENT
  Age: 56 Year
  Sex: Male

DRUGS (2)
  1. INFUMORPH [Suspect]
     Indication: PAIN
     Dates: end: 20130121
  2. INFUMORPH [Suspect]
     Indication: POST LAMINECTOMY SYNDROME
     Dates: end: 20130121

REACTIONS (4)
  - Withdrawal syndrome [None]
  - Hyperhidrosis [None]
  - Pain [None]
  - Device malfunction [None]
